FAERS Safety Report 10221680 (Version 3)
Quarter: 2014Q3

REPORT INFORMATION
  Report Type: Spontaneous
  Country: US (occurrence: US)
  Receive Date: 20140606
  Receipt Date: 20140718
  Transmission Date: 20150326
  Serious: No
  Sender: FDA-Public Use
  Company Number: US-PFIZER INC-2014153578

PATIENT
  Sex: Female

DRUGS (2)
  1. LYRICA [Suspect]
     Active Substance: PREGABALIN
     Indication: HERPES ZOSTER
     Dosage: 75 MG, 2X/DAY
     Route: 048
     Dates: start: 201402, end: 2014
  2. LYRICA [Suspect]
     Active Substance: PREGABALIN
     Indication: FIBROMYALGIA
     Dosage: 75 MG, 1X/DAY
     Route: 048
     Dates: start: 2014

REACTIONS (10)
  - Fatigue [Unknown]
  - Arthralgia [Unknown]
  - Toxicity to various agents [Unknown]
  - Activities of daily living impaired [Unknown]
  - Paraesthesia [Unknown]
  - Feeling abnormal [Unknown]
  - Peripheral swelling [Unknown]
  - Fear [Unknown]
  - Drug intolerance [Unknown]
  - Depression [Unknown]

NARRATIVE: CASE EVENT DATE: 2014
